FAERS Safety Report 8539665-1 (Version None)
Quarter: 2012Q3

REPORT INFORMATION
  Report Type: 
  Country: None (occurrence: None)
  Receive Date: 20120726
  Receipt Date: 20110720
  Transmission Date: 20120928
  Serious: No
  Sender: FDA-Public Use
  Company Number: US-ASTRAZENECA-2009SE24123

PATIENT
  Age: 44 Year
  Sex: Male
  Weight: 112.5 kg

DRUGS (16)
  1. SEROQUEL [Suspect]
     Indication: SCHIZOPHRENIA
     Dosage: 200MG AM-400 MG HS
     Route: 048
     Dates: start: 20001206, end: 20030904
  2. ZOLOFT [Concomitant]
     Dates: start: 20030804, end: 20031211
  3. HALDOL [Concomitant]
     Dates: start: 19940101
  4. ZYPREXA [Concomitant]
     Dates: start: 20000101
  5. KLONOPIN [Concomitant]
     Indication: DEPRESSION
     Dates: start: 20030603
  6. GEODON [Concomitant]
     Dates: start: 20061219, end: 20070404
  7. RISPERDAL [Concomitant]
     Indication: DEPRESSION
     Dates: start: 20031020, end: 20090308
  8. RISPERDAL [Concomitant]
     Dates: start: 20030904
  9. PROZAC [Concomitant]
     Dates: start: 20001206
  10. KLONOPIN [Concomitant]
     Dates: start: 20041115
  11. ZOLOFT [Concomitant]
     Dosage: 100 OD
     Dates: start: 20030603
  12. WELLBUTRIN [Concomitant]
     Dates: start: 20070919, end: 20090409
  13. RISPERDAL [Concomitant]
     Dates: start: 20041115
  14. PROZAC [Concomitant]
     Indication: DEPRESSION
     Dosage: 20-40 MG
     Dates: start: 20010619, end: 20090308
  15. TRAZODONE HCL [Concomitant]
     Dosage: 50-100MG
     Dates: start: 20080126, end: 20080905
  16. PROZAC [Concomitant]
     Dates: start: 20041115

REACTIONS (3)
  - OBESITY [None]
  - WEIGHT INCREASED [None]
  - TYPE 2 DIABETES MELLITUS [None]
